FAERS Safety Report 8525729-5 (Version None)
Quarter: 2012Q3

REPORT INFORMATION
  Report Type: 
  Country: None (occurrence: None)
  Receive Date: 20120720
  Receipt Date: 20120710
  Transmission Date: 20120928
  Serious: Yes (Hospitalization, Other)
  Sender: FDA-Public Use
  Company Number: US-009507513-1109USA02410

PATIENT

DRUGS (6)
  1. FOSAMAX [Suspect]
     Dosage: 70 MG, UNK
     Route: 048
     Dates: end: 20010701
  2. VITAMIN D (UNSPECIFIED) [Concomitant]
     Route: 048
     Dates: start: 19960101
  3. FOSAMAX [Suspect]
     Indication: OSTEOPOROSIS
     Dosage: 70 MG, UNK
     Route: 048
     Dates: start: 19970101
  4. ACTONEL [Suspect]
     Indication: OSTEOPOROSIS
     Dosage: ^APPROX 1999-2005^ ^APPR 2003 TO 2008^
     Route: 048
     Dates: start: 19990101, end: 20080101
  5. SYNTHROID [Concomitant]
     Indication: HYPOTHYROIDISM
     Dates: start: 19880101
  6. FOSAMAX [Suspect]
     Dosage: 10 MG, QD
     Route: 048
     Dates: start: 19990825

REACTIONS (31)
  - PAPILLOMA [None]
  - DEVICE FAILURE [None]
  - NAIL DISORDER [None]
  - URTICARIA [None]
  - PALPITATIONS [None]
  - LOOSE TOOTH [None]
  - DELIRIUM [None]
  - HYPERCHOLESTEROLAEMIA [None]
  - DRUG HYPERSENSITIVITY [None]
  - PAIN IN EXTREMITY [None]
  - VITAMIN D DEFICIENCY [None]
  - SKIN PAPILLOMA [None]
  - ARTHRALGIA [None]
  - GASTROOESOPHAGEAL REFLUX DISEASE [None]
  - SARCOIDOSIS [None]
  - INTERVERTEBRAL DISC PROTRUSION [None]
  - TENDONITIS [None]
  - BURSITIS [None]
  - HAND FRACTURE [None]
  - OSTEOARTHRITIS [None]
  - SEBORRHOEIC KERATOSIS [None]
  - FALL [None]
  - ENDOMETRIAL HYPERTROPHY [None]
  - MUSCLE STRAIN [None]
  - BACK PAIN [None]
  - FEMUR FRACTURE [None]
  - BREAST CANCER [None]
  - CONTRAST MEDIA ALLERGY [None]
  - FOOT FRACTURE [None]
  - SKIN LESION [None]
  - MUSCLE SPASMS [None]
